FAERS Safety Report 6464649-7 (Version None)
Quarter: 2009Q4

REPORT INFORMATION
  Report Type: 
  Country: None (occurrence: None)
  Receive Date: 20091201
  Receipt Date: 20091127
  Transmission Date: 20100525
  Serious: Yes (Other)
  Sender: FDA-Public Use
  Company Number: DE-PFIZER INC-2009281552

PATIENT
  Age: 75 Year
  Sex: Male

DRUGS (1)
  1. TOVIAZ [Suspect]
     Indication: MICTURITION DISORDER
     Dosage: 8 MG, 1X/DAY
     Route: 048
     Dates: start: 20090701

REACTIONS (6)
  - CONSTIPATION [None]
  - DRY MOUTH [None]
  - FATIGUE [None]
  - FLATULENCE [None]
  - SLEEP DISORDER [None]
  - VERTIGO [None]
